FAERS Safety Report 6619365-5 (Version None)
Quarter: 2010Q1

REPORT INFORMATION
  Report Type: 
  Country: None (occurrence: None)
  Receive Date: 20100303
  Receipt Date: 20100223
  Transmission Date: 20100710
  Serious: Yes (Death, Hospitalization)
  Sender: FDA-Public Use
  Company Number: 100224-0000237

PATIENT
  Age: 13 Month
  Sex: Male

DRUGS (7)
  1. L-ASPARAGINASE (ASPARAGINASE) [Suspect]
     Indication: B-CELL TYPE ACUTE LEUKAEMIA
  2. PREDNISOLONE [Suspect]
     Indication: CHEMOTHERAPY
     Dosage: 40 MG/M**2;QD; PO
     Route: 048
  3. VINCRISTINE [Suspect]
     Indication: CHEMOTHERAPY
     Dosage: 1.5 MG/M**2;QD
  4. IDARUBICIN HCL [Suspect]
     Indication: CHEMOTHERAPY
     Dosage: 8 MG/M**2;QD
  5. METHOTREXATE [Suspect]
     Indication: CHEMOTHERAPY
     Dosage: ;INTH
     Route: 055
  6. CYTARABINE [Suspect]
     Indication: CHEMOTHERAPY
     Dosage: ;INTH
     Route: 055
  7. HYDROCORTONE [Suspect]
     Indication: CHEMOTHERAPY
     Dosage: ;INTH
     Route: 055

REACTIONS (13)
  - ABDOMINAL DISTENSION [None]
  - ASTHENIA [None]
  - BLOOD BILIRUBIN INCREASED [None]
  - CAECITIS [None]
  - CARDIOPULMONARY FAILURE [None]
  - COMA [None]
  - CONTINUOUS HAEMODIAFILTRATION [None]
  - HYPERAMMONAEMIC ENCEPHALOPATHY [None]
  - LEUKOCYTOSIS [None]
  - METABOLIC ALKALOSIS [None]
  - NO THERAPEUTIC RESPONSE [None]
  - PETECHIAE [None]
  - RESPIRATORY ALKALOSIS [None]
